FAERS Safety Report 7236912-3 (Version None)
Quarter: 2011Q1

REPORT INFORMATION
  Report Type: 
  Country: None (occurrence: None)
  Receive Date: 20110120
  Receipt Date: 20110113
  Transmission Date: 20110831
  Serious: Yes (Hospitalization)
  Sender: FDA-Public Use
  Company Number: DE-AMGEN-DEUCT2010010949

PATIENT

DRUGS (8)
  1. ETANERCEPT [Suspect]
     Indication: POLYARTHRITIS
     Dosage: 50 MG, QWK
     Dates: start: 20101201
  2. METHOTREXATE SODIUM [Suspect]
     Dosage: UNK
     Dates: start: 20101001
  3. VOLTAREN [Concomitant]
     Indication: PRODUCT USED FOR UNKNOWN INDICATION
  4. ETANERCEPT [Suspect]
     Dosage: 50 MG, QWK
     Dates: end: 20101001
  5. ETANERCEPT [Suspect]
     Indication: RHEUMATOID ARTHRITIS
     Dosage: 50 MG, QWK
     Dates: start: 20010101
  6. PREDNISONE [Suspect]
     Indication: RHEUMATOID ARTHRITIS
     Dosage: UNK
  7. VOLTAREN [Concomitant]
     Dosage: UNK
  8. METHOTREXATE SODIUM [Suspect]
     Indication: RHEUMATOID ARTHRITIS
     Dosage: UNK
     Dates: end: 20101001

REACTIONS (5)
  - ILEUS PARALYTIC [None]
  - PERITONITIS [None]
  - DIVERTICULITIS [None]
  - ABDOMINAL WALL ABSCESS [None]
  - DIVERTICULAR PERFORATION [None]
